FAERS Safety Report 10908658 (Version 1)
Quarter: 2015Q1

REPORT INFORMATION
  Report Type: Report from Study
  Country: GB (occurrence: GB)
  Receive Date: 20150312
  Receipt Date: 20150312
  Transmission Date: 20150721
  Serious: Yes (Hospitalization, Other)
  Sender: FDA-Public Use
  Company Number: GB-JNJFOC-20141203708

PATIENT
  Sex: Male

DRUGS (2)
  1. STELARA [Suspect]
     Active Substance: USTEKINUMAB
     Indication: PSORIASIS
     Route: 058
     Dates: start: 20141201
  2. STELARA [Suspect]
     Active Substance: USTEKINUMAB
     Indication: PSORIASIS
     Route: 058
     Dates: start: 20141107

REACTIONS (8)
  - Pneumonia [Unknown]
  - Deep vein thrombosis [Unknown]
  - Conjunctivitis [Unknown]
  - Eyelid margin crusting [Unknown]
  - Urinary tract infection [Unknown]
  - Sepsis [Unknown]
  - Aortic aneurysm [Unknown]
  - Pulmonary embolism [Not Recovered/Not Resolved]
